FAERS Safety Report 14011401 (Version 1)
Quarter: 2017Q3

REPORT INFORMATION
  Report Type: Spontaneous
  Country: US (occurrence: US)
  Receive Date: 20170926
  Receipt Date: 20170926
  Transmission Date: 20171128
  Serious: No
  Sender: FDA-Public Use
  Company Number: US-HETERO CORPORATE-HET2017US00194

PATIENT

DRUGS (3)
  1. XALATAN [Concomitant]
     Active Substance: LATANOPROST
     Indication: PRODUCT USED FOR UNKNOWN INDICATION
     Route: 065
  2. TIMOLOL. [Concomitant]
     Active Substance: TIMOLOL
     Indication: PRODUCT USED FOR UNKNOWN INDICATION
     Route: 065
  3. INDOMETHACIN. [Suspect]
     Active Substance: INDOMETHACIN
     Indication: GOUT
     Dosage: 25 MG, QD
     Route: 048

REACTIONS (2)
  - Pruritus generalised [Not Recovered/Not Resolved]
  - Rash generalised [Not Recovered/Not Resolved]
